FAERS Safety Report 10034714 (Version 2)
Quarter: 2014Q2

REPORT INFORMATION
  Report Type: Spontaneous
  Country: US (occurrence: US)
  Receive Date: 20140325
  Receipt Date: 20140619
  Transmission Date: 20141212
  Serious: No
  Sender: FDA-Public Use
  Company Number: US-009507513-1403USA004469

PATIENT
  Age: 76 Year
  Sex: Female
  Weight: 75.28 kg

DRUGS (5)
  1. OXYTROL FOR WOMEN [Suspect]
     Indication: HYPERTONIC BLADDER
     Dosage: 1 DF, UNKNOWN
     Route: 062
     Dates: start: 201402, end: 201403
  2. OXYTROL FOR WOMEN [Suspect]
     Indication: MICTURITION URGENCY
  3. INSULIN [Concomitant]
     Indication: DIABETES MELLITUS
     Dosage: UNK, UNKNOWN
  4. COREG [Concomitant]
     Indication: CAROTID ARTERY STENT INSERTION
     Dosage: UNK, UNKNOWN
  5. LIPITOR [Concomitant]
     Indication: CAROTID ARTERY STENT INSERTION
     Dosage: UNK, UNKNOWN

REACTIONS (2)
  - Rash [Recovered/Resolved]
  - Off label use [Unknown]
